FAERS Safety Report 24554543 (Version 1)
Quarter: 2024Q4

REPORT INFORMATION
  Report Type: Spontaneous
  Country: US (occurrence: US)
  Receive Date: 20241028
  Receipt Date: 20241028
  Transmission Date: 20250115
  Serious: No
  Sender: NOVARTIS
  Company Number: US-002147023-NVSC2024US208908

PATIENT
  Sex: Female

DRUGS (1)
  1. LEQVIO [Suspect]
     Active Substance: INCLISIRAN SODIUM
     Indication: Blood cholesterol decreased
     Dosage: UNK, QD (284MG/1.5ML)
     Route: 058
     Dates: start: 20240901, end: 20240930

REACTIONS (2)
  - Pyrexia [Recovered/Resolved]
  - Lethargy [Recovered/Resolved]
